FAERS Safety Report 18350667 (Version 5)
Quarter: 2021Q2

REPORT INFORMATION
  Report Type: Report from Study
  Country: CA (occurrence: CA)
  Receive Date: 20201006
  Receipt Date: 20210616
  Transmission Date: 20210717
  Serious: Yes (Hospitalization, Other)
  Sender: FDA-Public Use
  Company Number: PHHY2016CA003994

PATIENT
  Age: 70 Year
  Sex: Male

DRUGS (5)
  1. SANDOSTATIN LAR DEPOT [Suspect]
     Active Substance: OCTREOTIDE ACETATE
  2. BCG VACCINE USP [Concomitant]
     Active Substance: BACILLUS CALMETTE-GUERIN SUBSTRAIN TICE LIVE ANTIGEN
     Indication: PRODUCT USED FOR UNKNOWN INDICATION
     Dosage: UNK
     Route: 065
     Dates: start: 20180329
  3. SANDOSTATIN LAR DEPOT [Suspect]
     Active Substance: OCTREOTIDE ACETATE
  4. SANDOSTATIN LAR DEPOT [Suspect]
     Active Substance: OCTREOTIDE ACETATE
     Indication: NEUROENDOCRINE TUMOUR
     Dosage: 30 MG, QMO (EVERY 4 WEEKS)
     Route: 030
     Dates: start: 20151215
  5. SYNTHROID [Concomitant]
     Active Substance: LEVOTHYROXINE SODIUM
     Indication: PRODUCT USED FOR UNKNOWN INDICATION
     Dosage: UNK
     Route: 065

REACTIONS (31)
  - Acute kidney injury [Recovered/Resolved]
  - Neuroendocrine tumour [Not Recovered/Not Resolved]
  - Synovial cyst [Unknown]
  - Metastases to kidney [Unknown]
  - Metastases to liver [Not Recovered/Not Resolved]
  - Metastases to lung [Unknown]
  - Body temperature decreased [Unknown]
  - Balance disorder [Unknown]
  - Fatigue [Recovering/Resolving]
  - Rheumatoid arthritis [Unknown]
  - Urethritis noninfective [Unknown]
  - Lymphadenopathy [Unknown]
  - Hepatic mass [Unknown]
  - Pollakiuria [Unknown]
  - Adrenal mass [Unknown]
  - Osteoarthritis [Unknown]
  - Lung hyperinflation [Unknown]
  - Diverticulum [Unknown]
  - Heart rate decreased [Unknown]
  - Dizziness [Recovered/Resolved]
  - Bladder cancer [Recovering/Resolving]
  - Malignant neoplasm progression [Not Recovered/Not Resolved]
  - Weight decreased [Unknown]
  - Cough [Unknown]
  - Ear disorder [Unknown]
  - Urinary tract infection [Unknown]
  - Hepatic cyst [Unknown]
  - Nausea [Unknown]
  - Second primary malignancy [Recovering/Resolving]
  - Vision blurred [Unknown]
  - Mass [Unknown]

NARRATIVE: CASE EVENT DATE: 20160111
